FAERS Safety Report 8025329-X (Version None)
Quarter: 2012Q1

REPORT INFORMATION
  Report Type: 
  Country: None (occurrence: None)
  Receive Date: 20120105
  Receipt Date: 20120103
  Transmission Date: 20120608
  Serious: Yes (Congenital Anomaly, Other)
  Sender: FDA-Public Use
  Company Number: US-PFIZER INC-2011293288

PATIENT
  Sex: Female

DRUGS (7)
  1. ZOLOFT [Suspect]
     Dosage: 50 MG, AT BEDTIME
     Route: 064
     Dates: start: 20021201
  2. ZELNORM [Concomitant]
     Indication: IRRITABLE BOWEL SYNDROME
     Dosage: UNK
     Route: 064
  3. ZOLOFT [Suspect]
     Indication: DEPRESSION
     Dosage: 25 MG, AT BEDTIME FOR FIRST WEEK
     Route: 064
     Dates: start: 20021125, end: 20021201
  4. MIDOL EXTENDED RELIEF CAPLETS [Concomitant]
     Dosage: UNK
     Route: 064
  5. LORCET-HD [Concomitant]
     Indication: PAIN
     Dosage: 10 MG, AT NIGHT TIME
     Route: 064
     Dates: start: 20050104
  6. TYLENOL PM [Concomitant]
     Dosage: UNK
     Route: 064
  7. ACETAMINOPHEN [Concomitant]
     Dosage: UNK
     Route: 064

REACTIONS (8)
  - OTITIS MEDIA ACUTE [None]
  - DILATATION VENTRICULAR [None]
  - DRUG ERUPTION [None]
  - PREMATURE BABY [None]
  - CARDIAC MURMUR [None]
  - ATRIAL SEPTAL DEFECT [None]
  - RIGHT ATRIAL DILATATION [None]
  - MATERNAL EXPOSURE TIMING UNSPECIFIED [None]
